FAERS Safety Report 10433631 (Version 6)
Quarter: 2015Q2

REPORT INFORMATION
  Report Type: Report from Study
  Country: CN (occurrence: CN)
  Receive Date: 20140905
  Receipt Date: 20150606
  Transmission Date: 20150821
  Serious: Yes (Death, Hospitalization, Other)
  Sender: FDA-Public Use
  Company Number: PHHY2014CN073918

PATIENT
  Age: 28 Year
  Sex: Male
  Weight: 42 kg

DRUGS (7)
  1. ASPIRIN. [Concomitant]
     Active Substance: ASPIRIN
     Indication: PROPHYLAXIS
     Route: 065
  2. TACROLIMUS. [Concomitant]
     Active Substance: TACROLIMUS
     Indication: PROPHYLAXIS AGAINST TRANSPLANT REJECTION
     Dosage: 2.5 MG, QD
     Route: 065
     Dates: start: 20140416, end: 20140725
  3. H2 BLOCKER//CIMETIDINE [Concomitant]
     Indication: PROPHYLAXIS
     Dosage: UNK UNK, BID
     Route: 065
  4. MYCOPHENOLIC ACID. [Suspect]
     Active Substance: MYCOPHENOLIC ACID
     Indication: PROPHYLAXIS AGAINST TRANSPLANT REJECTION
  5. MEDROL [Concomitant]
     Active Substance: METHYLPREDNISOLONE
     Indication: PROPHYLAXIS AGAINST TRANSPLANT REJECTION
     Dosage: 12 MG, QD
     Route: 065
     Dates: start: 20140406, end: 20140725
  6. MYCOPHENOLIC ACID. [Suspect]
     Active Substance: MYCOPHENOLIC ACID
     Indication: RENAL TRANSPLANT
     Dosage: 1080 MG, QD
     Route: 048
     Dates: start: 20140403, end: 20140620
  7. CALCIUM + VITAMIN D [Concomitant]
     Active Substance: CALCIUM\VITAMIN D
     Indication: PROPHYLAXIS
     Route: 065

REACTIONS (8)
  - Blood creatinine increased [Unknown]
  - Pleural effusion [Unknown]
  - Death [Fatal]
  - Lower respiratory tract infection [Unknown]
  - Pyrexia [Unknown]
  - Renal injury [Unknown]
  - Dyspnoea [Unknown]
  - Kidney transplant rejection [Unknown]

NARRATIVE: CASE EVENT DATE: 20140429
